FAERS Safety Report 5014968-6 (Version None)
Quarter: 2006Q2

REPORT INFORMATION
  Report Type: 
  Country: None (occurrence: None)
  Receive Date: 20060425
  Receipt Date: 20060127
  Transmission Date: 20061013
  Serious: No
  Sender: FDA-Public Use
  Company Number: 221559

PATIENT
  Age: 45 Year
  Sex: Male

DRUGS (13)
  1. XOLAIR [Suspect]
     Indication: ASTHMA
     Dosage: 375 MG, Q2W, UNK
     Route: 065
     Dates: start: 20040901
  2. PULMICORT [Concomitant]
  3. ADVAIR DISKUS 100/50 [Concomitant]
  4. SINGULAIR [Concomitant]
  5. ALLEGRA [Concomitant]
  6. MAXAIR [Concomitant]
  7. GUAIFENESIN (GUAIFENESIN) [Concomitant]
  8. EFFEXOR [Concomitant]
  9. ACIPHEX [Concomitant]
  10. REQUIP [Concomitant]
  11. METHADONE HCL [Concomitant]
  12. PERCOCET [Concomitant]
  13. WELLBUTRIN [Concomitant]

REACTIONS (1)
  - ANAEMIA [None]
